FAERS Safety Report 24825173 (Version 1)
Quarter: 2025Q1

REPORT INFORMATION
  Report Type: Spontaneous
  Country: IT (occurrence: None)
  Receive Date: 20250109
  Receipt Date: 20250109
  Transmission Date: 20250409
  Serious: Yes (Disabling)
  Sender: FDA-CTU
  Company Number: None

PATIENT
  Age: 26 Year
  Sex: Male
  Weight: 60 kg

DRUGS (1)
  1. CIPRALEX [Suspect]
     Active Substance: ESCITALOPRAM OXALATE
     Indication: Depression
     Dosage: 1 TABLET DAILY ORAL
     Route: 048

REACTIONS (5)
  - Sexual dysfunction [None]
  - Anhedonia [None]
  - Brain fog [None]
  - Memory impairment [None]
  - Therapy interrupted [None]

NARRATIVE: CASE EVENT DATE: 20220301
